FAERS Safety Report 22252561 (Version 1)
Quarter: 2023Q2

REPORT INFORMATION
  Report Type: Spontaneous
  Country: US (occurrence: US)
  Receive Date: 20230426
  Receipt Date: 20230426
  Transmission Date: 20230721
  Serious: No
  Sender: FDA-Public Use
  Company Number: US-MACLEODS PHARMACEUTICALS US LTD-MAC2023040884

PATIENT

DRUGS (1)
  1. EMTRICITABINE\TENOFOVIR [Suspect]
     Active Substance: EMTRICITABINE\TENOFOVIR
     Indication: Product used for unknown indication
     Dosage: UNK
     Route: 065

REACTIONS (4)
  - Granuloma skin [Not Recovered/Not Resolved]
  - Immune system disorder [Not Recovered/Not Resolved]
  - Angiotensin converting enzyme increased [Not Recovered/Not Resolved]
  - Product substitution issue [Unknown]
